FAERS Safety Report 9025352 (Version 2)
Quarter: 2013Q4

REPORT INFORMATION
  Report Type: Report from Study
  Country: MX (occurrence: MX)
  Receive Date: 20121211
  Receipt Date: 20131105
  Transmission Date: 20140711
  Serious: Yes (Other)
  Sender: FDA-Public Use
  Company Number: PHHY2012MX113373

PATIENT
  Age: 76 Year
  Sex: Female

DRUGS (6)
  1. DIOVAN [Suspect]
     Indication: HYPERTENSION
     Dosage: 1 DF, (320 MG) DAILY
     Route: 048
     Dates: end: 201309
  2. DIOVAN [Suspect]
     Dosage: 2 DF, (160 MG) DAILY
     Route: 048
     Dates: start: 201309
  3. BI-EUGLUCON M [Concomitant]
     Indication: BLOOD GLUCOSE ABNORMAL
     Dosage: 3 DF, DAILY
     Route: 065
     Dates: start: 1992
  4. LYRICA [Concomitant]
     Indication: DIABETIC NEUROPATHY
     Dosage: 1DF,DAILY
     Route: 065
  5. ADALAT [Concomitant]
     Indication: HYPERTENSION
     Dosage: 1 UKN, DAILY
     Dates: start: 2013
  6. DIMEFOR [Concomitant]
     Dosage: 2 DF (2.5 MG) DAILY (HALF AT BREAKFAST)
     Dates: start: 2013

REACTIONS (3)
  - Osteoarthritis [Recovered/Resolved]
  - Musculoskeletal pain [Recovered/Resolved]
  - Drug administration error [Not Recovered/Not Resolved]
